FAERS Safety Report 6923014-6 (Version None)
Quarter: 2010Q3

REPORT INFORMATION
  Report Type: 
  Country: None (occurrence: None)
  Receive Date: 20100813
  Receipt Date: 20100802
  Transmission Date: 20110219
  Serious: Yes (Hospitalization, Other)
  Sender: FDA-Public Use
  Company Number: BR-PFIZER INC-2010097168

PATIENT
  Age: 54 Year
  Sex: Male

DRUGS (4)
  1. VIAGRA [Suspect]
     Indication: ERECTILE DYSFUNCTION
     Dosage: UNK
     Route: 048
     Dates: start: 20090102, end: 20090402
  2. OXCORD [Concomitant]
     Dosage: UNK
     Dates: start: 20060101
  3. METFORMIN [Concomitant]
     Dosage: UNK
     Dates: start: 20060101
  4. GLIMEPIRIDE [Concomitant]
     Dosage: UNK
     Dates: start: 20090101

REACTIONS (2)
  - BALANCE DISORDER [None]
  - CEREBROVASCULAR ACCIDENT [None]
